FAERS Safety Report 8054235-X (Version None)
Quarter: 2012Q1

REPORT INFORMATION
  Report Type: 
  Country: None (occurrence: None)
  Receive Date: 20120118
  Receipt Date: 20120111
  Transmission Date: 20120608
  Serious: Yes (Other)
  Sender: FDA-Public Use
  Company Number: US-ROCHE-794125

PATIENT
  Sex: Female
  Weight: 79.45 kg

DRUGS (1)
  1. ACCUTANE [Suspect]
     Indication: ACNE
     Route: 065
     Dates: start: 20010401, end: 20011031

REACTIONS (6)
  - SUICIDE ATTEMPT [None]
  - COLITIS ULCERATIVE [None]
  - INFLAMMATORY BOWEL DISEASE [None]
  - SUICIDAL IDEATION [None]
  - IRRITABLE BOWEL SYNDROME [None]
  - DEPRESSION [None]
